FAERS Safety Report 13439671 (Version 5)
Quarter: 2018Q1

REPORT INFORMATION
  Report Type: Report from Study
  Country: US (occurrence: US)
  Receive Date: 20170413
  Receipt Date: 20180201
  Transmission Date: 20180508
  Serious: Yes (Life-Threatening, Hospitalization)
  Sender: FDA-Public Use
  Company Number: US-BAXTER-2017BAX015287

PATIENT
  Age: 18 Year
  Sex: Female
  Weight: 115.1 kg

DRUGS (25)
  1. CYTARABINE. [Suspect]
     Active Substance: CYTARABINE
     Dosage: LAST DOSE PRIOR TO SAE
     Route: 065
     Dates: start: 20170223
  2. CYTARABINE. [Suspect]
     Active Substance: CYTARABINE
     Dosage: DAYS 29-32, 36-39, REGIMEN#2
     Route: 042
     Dates: start: 20170320
  3. CYTARABINE. [Suspect]
     Active Substance: CYTARABINE
     Dosage: LAST DOSE PRIOR TO SECOND EPISODE OF GRADE 3 FEBRILE NEUTROPENIA
     Route: 042
     Dates: start: 20170327
  4. VINCRISTINE [Suspect]
     Active Substance: VINCRISTINE
     Indication: CHEMOTHERAPY
     Dosage: DOSE FURTHER REPORTED AS 1.5 MG/M2, DAY 1, 8, 15, 22, 43, 50, REGIMEN 1
     Route: 042
     Dates: start: 20170227
  5. PEG/L-ASPARAGINASE [Suspect]
     Active Substance: PEGASPARGASE
     Indication: CHEMOTHERAPY
     Dosage: INFUSION, ABOUT 10 PERCENT, DAY 4, DOSE FURTHER REPORTED AS 2500 IU/M2
     Route: 042
     Dates: start: 20170104, end: 20170104
  6. PEG/L-ASPARAGINASE [Suspect]
     Active Substance: PEGASPARGASE
     Dosage: INFUSION, ABOUT 10 PERCENT, DAY 4, 15 AND 43, DOSE FURTHER REPORTED AS 2500 IU/M2, LAST DOSE PRIOR T
     Route: 042
     Dates: start: 20170306, end: 20170306
  7. METHOTREXATE. [Suspect]
     Active Substance: METHOTREXATE
     Dosage: LAST DOSE PRIOR TO SECOND EPISODE OF GRADE 3 FEBRILE NEUTROPENIA
     Route: 037
     Dates: start: 20170306
  8. ASPARAGINASE ERWINA CRYSANTHEMI [Suspect]
     Active Substance: ASPARAGINASE ERWINIA CHRYSANTHEMI
     Indication: CHEMOTHERAPY
     Dosage: REGIMEN#1, 54000 UNITS
     Route: 030
     Dates: start: 20170310
  9. CYCLOPHOSPHAMIDE FOR INJECTION, USP [Suspect]
     Active Substance: CYCLOPHOSPHAMIDE
     Dosage: REGIMEN# 2, LAST DOSE PRIOR TO THE ONSET OF SECOND EPISODE OF FEBRILE NEUTROPENIA, SINGLE
     Route: 042
     Dates: start: 20170320
  10. CYTARABINE. [Suspect]
     Active Substance: CYTARABINE
     Route: 037
     Dates: start: 20170104
  11. CYCLOPHOSPHAMIDE FOR INJECTION, USP [Suspect]
     Active Substance: CYCLOPHOSPHAMIDE
     Indication: CHEMOTHERAPY
     Dosage: REGIMEN# 1, DOSE FURTHER REPORTED AS 1000 MG/M2, DAY1 AND 29, SINGLE
     Route: 042
     Dates: start: 20170210
  12. CYTARABINE. [Suspect]
     Active Substance: CYTARABINE
     Dosage: DAY 1-4, 8-11, 29-32 AND 36-39, REGIMEN 1
     Route: 042
     Dates: start: 20170210
  13. METHOTREXATE. [Suspect]
     Active Substance: METHOTREXATE
     Dosage: REGIMEN#2
     Route: 037
     Dates: start: 20170210
  14. MERCAPTOPURINE. [Suspect]
     Active Substance: MERCAPTOPURINE
     Indication: CHEMOTHERAPY
     Dosage: REGIMEN#1, 150 MG X 2 DAYS, 125 X5 DAYS DAILY 14 DAYS, DOSE FURTHER REPORTED AS 60 MG/M2, DAYS 1-14
     Route: 048
     Dates: start: 20170210
  15. MERCAPTOPURINE. [Suspect]
     Active Substance: MERCAPTOPURINE
     Dosage: LAST DOSE PRIOR TO SECOND EPISODE OF FEBRILE NEUTROPENIA
     Route: 065
     Dates: start: 20170407
  16. ASPARAGINASE ERWINA CRYSANTHEMI [Suspect]
     Active Substance: ASPARAGINASE ERWINIA CHRYSANTHEMI
     Dosage: REGIMEN#2, 56000 UNITS, TOTAL 5 DOSES
     Route: 030
     Dates: start: 20170313
  17. INCB018424 [Suspect]
     Active Substance: RUXOLITINIB
     Dosage: LAST DOSE PRIOR TO SAE, CHEMOTHERAPY DAY 14
     Route: 048
     Dates: start: 20170223
  18. ASPARAGINASE ERWINA CRYSANTHEMI [Suspect]
     Active Substance: ASPARAGINASE ERWINIA CHRYSANTHEMI
     Dosage: LAST DOSE PRIOR TO THE SECOND EPISODE OF FEBRILE NEUTROPENIA
     Route: 065
     Dates: start: 20170407
  19. CYTARABINE. [Suspect]
     Active Substance: CYTARABINE
     Indication: CHEMOTHERAPY
     Route: 037
     Dates: start: 20170101
  20. INCB018424 [Suspect]
     Active Substance: RUXOLITINIB
     Indication: ACUTE LYMPHOCYTIC LEUKAEMIA
     Route: 048
     Dates: start: 20170210
  21. INCB018424 [Suspect]
     Active Substance: RUXOLITINIB
     Dosage: LAST DOSE PRIOR TO SECOND OCCURENCE OF GRADE 3 FEBRILE NEUTROPENIA
     Route: 048
     Dates: start: 20170402
  22. VINCRISTINE [Suspect]
     Active Substance: VINCRISTINE
     Dosage: LAST DOSE PRIOR TO SECOND EPISODE OF GRADE 3 FEBRILE NEUTROPENIA
     Route: 042
     Dates: start: 20170403
  23. METHOTREXATE. [Suspect]
     Active Substance: METHOTREXATE
     Indication: CHEMOTHERAPY
     Dosage: REGIMEN #1, DAY 8 AND DAY 29
     Route: 037
     Dates: start: 20170109
  24. MERCAPTOPURINE. [Suspect]
     Active Substance: MERCAPTOPURINE
     Dosage: LAST DOSE PRIOR TO SAE
     Route: 048
     Dates: start: 20170223
  25. MERCAPTOPURINE. [Suspect]
     Active Substance: MERCAPTOPURINE
     Dosage: 150 MG X 3 DAYS, 125 X 4 DAYS DAILY 14 DAYS, TABLET
     Route: 048
     Dates: start: 20170320

REACTIONS (4)
  - Febrile neutropenia [Recovered/Resolved]
  - Febrile neutropenia [Recovered/Resolved]
  - Vascular access complication [Not Recovered/Not Resolved]
  - Anaphylactic reaction [Recovered/Resolved]

NARRATIVE: CASE EVENT DATE: 20170227
